FAERS Safety Report 23306198 (Version 1)
Quarter: 2023Q4

REPORT INFORMATION
  Report Type: Report from Study
  Country: JP (occurrence: JP)
  Receive Date: 20231218
  Receipt Date: 20231218
  Transmission Date: 20240109
  Serious: Yes (Hospitalization, Other)
  Sender: FDA-Public Use
  Company Number: JP-GSKJP-JP2021JPN245859

PATIENT
  Age: 7 Decade
  Sex: Male

DRUGS (1)
  1. BOTULINUM TOXIN TYPE A [Suspect]
     Active Substance: BOTULINUM TOXIN TYPE A
     Indication: Hypertonic bladder
     Dosage: TIME INTERVAL: AS NECESSARY
     Route: 030
     Dates: start: 20211109, end: 20211109

REACTIONS (6)
  - Urinary retention [Recovering/Resolving]
  - Bacterial prostatitis [Recovered/Resolved]
  - Condition aggravated [Unknown]
  - Cystitis [Recovered/Resolved]
  - Hypertonic bladder [Unknown]
  - Therapeutic response decreased [Unknown]

NARRATIVE: CASE EVENT DATE: 20211112
